FAERS Safety Report 4352541-3 (Version None)
Quarter: 2004Q2

REPORT INFORMATION
  Report Type: 
  Country: None (occurrence: None)
  Receive Date: 20040428
  Receipt Date: 20040420
  Transmission Date: 20050107
  Serious: Yes (Other)
  Sender: FDA-Public Use
  Company Number: 30015967-NA01-1

PATIENT
  Age: 64 Year
  Sex: Male
  Weight: 66 kg

DRUGS (15)
  1. EXTRANEAL [Suspect]
     Indication: PERITONEAL DIALYSIS
     Dosage: 7.5% ICODEXTRIN 2L QD IP
     Route: 033
     Dates: start: 20030702, end: 20030825
  2. DIANEAL [Concomitant]
  3. FUROSEMIDE [Concomitant]
  4. TRICHLORMETHIAXZIDE [Concomitant]
  5. PRECIPITATED CALCIUM CARBONATE [Concomitant]
  6. VALSARTAN [Concomitant]
  7. BENIDIPINE HYDROCHLORIDE [Concomitant]
  8. VERAPAMIL HYDROCHLORIDE [Concomitant]
  9. DIGOXIN [Concomitant]
  10. FAMOTIDINE [Concomitant]
  11. CALCITRIOL [Concomitant]
  12. POLYCARBOPHIL CALCIUM [Concomitant]
  13. NAFTOPIDIL [Concomitant]
  14. DIGESTIVE ENZYME PREPARATIONS [Concomitant]
  15. WARFARIN POTASSIUM [Concomitant]

REACTIONS (3)
  - ANAEMIA [None]
  - C-REACTIVE PROTEIN INCREASED [None]
  - RED BLOOD CELL SEDIMENTATION RATE INCREASED [None]
